FAERS Safety Report 20456008 (Version 1)
Quarter: 2022Q1

REPORT INFORMATION
  Report Type: Spontaneous
  Country: US (occurrence: None)
  Receive Date: 20220210
  Receipt Date: 20220210
  Transmission Date: 20220423
  Serious: No
  Sender: FDA-Public Use
  Company Number: None

PATIENT
  Age: 58 Year
  Sex: Male
  Weight: 198 kg

DRUGS (1)
  1. SULFAMETHIZOLE\TRIMETHOPRIM [Suspect]
     Active Substance: SULFAMETHIZOLE\TRIMETHOPRIM
     Indication: Antibiotic therapy
     Dosage: OTHER QUANTITY : 800/160 MG;?FREQUENCY : AS DIRECTED;?
     Route: 048
     Dates: start: 20211008, end: 20211025

REACTIONS (5)
  - Headache [None]
  - Angioedema [None]
  - Sinus congestion [None]
  - Paraesthesia [None]
  - Oral discomfort [None]

NARRATIVE: CASE EVENT DATE: 20211025
